FAERS Safety Report 26159984 (Version 1)
Quarter: 2025Q4

REPORT INFORMATION
  Report Type: Spontaneous
  Country: CN (occurrence: CN)
  Receive Date: 20251216
  Receipt Date: 20251216
  Transmission Date: 20260118
  Serious: Yes (Other)
  Sender: ALKEM
  Company Number: None

PATIENT
  Age: 61 Year
  Sex: Female

DRUGS (9)
  1. TACROLIMUS [Suspect]
     Active Substance: TACROLIMUS
     Indication: Conjunctivitis fungal
     Dosage: UNK QID (EVERY 6 HOURS) (EYE DROPS)
  2. TACROLIMUS [Suspect]
     Active Substance: TACROLIMUS
     Indication: Ulcerative keratitis
  3. GATIFLOXACIN [Suspect]
     Active Substance: GATIFLOXACIN
     Indication: Conjunctivitis fungal
     Dosage: UNK (6 TIMES IN A DAY) EYE DROPS
  4. GATIFLOXACIN [Suspect]
     Active Substance: GATIFLOXACIN
     Indication: Ulcerative keratitis
  5. GATIFLOXACIN [Suspect]
     Active Substance: GATIFLOXACIN
     Indication: Evidence based treatment
  6. PREDNISOLONE ACETATE [Suspect]
     Active Substance: PREDNISOLONE ACETATE
     Indication: Conjunctivitis fungal
     Dosage: UNK, QID (EVERY 6 HOURS) EYE DROPS
  7. PREDNISOLONE ACETATE [Suspect]
     Active Substance: PREDNISOLONE ACETATE
     Indication: Ulcerative keratitis
  8. VORICONAZOLE [Suspect]
     Active Substance: VORICONAZOLE
     Indication: Conjunctivitis fungal
     Dosage: UNK (EVERY 2 HOURS) (EYE DROPS)
  9. VORICONAZOLE [Suspect]
     Active Substance: VORICONAZOLE
     Indication: Ulcerative keratitis
     Dosage: 10 MILLIGRAM PER MILLILITRE (1PERCENT) (INJECTION)
     Route: 057

REACTIONS (3)
  - Sporotrichosis [Recovering/Resolving]
  - Eye infection fungal [Recovering/Resolving]
  - Therapy non-responder [Unknown]

NARRATIVE: CASE EVENT DATE: 20230101
